FAERS Safety Report 16633411 (Version 1)
Quarter: 2019Q3

REPORT INFORMATION
  Report Type: Spontaneous
  Country: US (occurrence: US)
  Receive Date: 20190725
  Receipt Date: 20190725
  Transmission Date: 20191004
  Serious: No
  Sender: FDA-Public Use
  Company Number: None

PATIENT
  Sex: Male

DRUGS (2)
  1. TICAGRELOR 90 MG [Suspect]
     Active Substance: TICAGRELOR
  2. ATORVASTATIN 10 MG [Suspect]
     Active Substance: ATORVASTATIN

REACTIONS (1)
  - Drug ineffective [None]
